FAERS Safety Report 11749905 (Version 1)
Quarter: 2015Q4

REPORT INFORMATION
  Report Type: Spontaneous
  Country: US (occurrence: None)
  Receive Date: 20151117
  Receipt Date: 20151117
  Transmission Date: 20160304
  Serious: Yes (Death, Hospitalization)
  Sender: FDA-Public Use
  Company Number: None

PATIENT
  Age: 75 Year
  Sex: Male
  Weight: 53.65 kg

DRUGS (5)
  1. TEMOZOLOMIDE. [Suspect]
     Active Substance: TEMOZOLOMIDE
     Dates: end: 20151018
  2. DEXAMETHASONE. [Concomitant]
     Active Substance: DEXAMETHASONE
  3. FENTANYL. [Concomitant]
     Active Substance: FENTANYL
  4. GABAPENTIN. [Concomitant]
     Active Substance: GABAPENTIN
  5. OXYCODONE [Concomitant]
     Active Substance: OXYCODONE

REACTIONS (10)
  - Dehydration [None]
  - Pneumonia [None]
  - Disorientation [None]
  - Insomnia [None]
  - Respiratory failure [None]
  - Hypophagia [None]
  - Sepsis [None]
  - Headache [None]
  - Confusional state [None]
  - Glioblastoma [None]

NARRATIVE: CASE EVENT DATE: 20151018
